FAERS Safety Report 7634416-7 (Version None)
Quarter: 2011Q3

REPORT INFORMATION
  Report Type: 
  Country: None (occurrence: None)
  Receive Date: 20110725
  Receipt Date: 20110714
  Transmission Date: 20111222
  Serious: Yes (Other)
  Sender: FDA-Public Use
  Company Number: PHHY2011DE63629

PATIENT
  Age: 75 Year
  Sex: Male

DRUGS (3)
  1. CHEMOTHERAPEUTICS,OTHER [Concomitant]
     Dosage: UNK
  2. CORTISONE ACETATE [Concomitant]
     Dosage: UNK
  3. ZOMETA [Suspect]
     Dosage: UNK

REACTIONS (1)
  - OSTEONECROSIS OF JAW [None]
